FAERS Safety Report 8432379-8 (Version None)
Quarter: 2012Q2

REPORT INFORMATION
  Report Type: 
  Country: None (occurrence: None)
  Receive Date: 20120613
  Receipt Date: 20120612
  Transmission Date: 20120825
  Serious: Yes (Death, Hospitalization)
  Sender: FDA-Public Use
  Company Number: PHHO2012KR008417

PATIENT
  Sex: Male
  Weight: 64.5 kg

DRUGS (3)
  1. AFINITOR [Suspect]
     Indication: METASTATIC RENAL CELL CARCINOMA
     Dosage: 10 MG, UNK
     Route: 048
     Dates: start: 20110415, end: 20120603
  2. COUGH SYRUP [Concomitant]
     Indication: PRODUCTIVE COUGH
  3. COUGH SYRUP [Concomitant]
     Indication: COUGH
     Dosage: 20 MG, BID
     Route: 048
     Dates: start: 20100805, end: 20120805

REACTIONS (1)
  - SEPTIC SHOCK [None]
